FAERS Safety Report 24046315 (Version 1)
Quarter: 2024Q3

REPORT INFORMATION
  Report Type: Spontaneous
  Country: US (occurrence: None)
  Receive Date: 20240703
  Receipt Date: 20240703
  Transmission Date: 20241017
  Serious: Yes (Hospitalization)
  Sender: Public
  Company Number: None

PATIENT
  Age: 77 Year
  Sex: Female
  Weight: 103.4 kg

DRUGS (2)
  1. GEMCITABINE HYDROCHLORIDE [Suspect]
     Active Substance: GEMCITABINE HYDROCHLORIDE
     Dates: end: 20240607
  2. PACLITAXEL PROTEIN-BOUND PARTICLES [Suspect]
     Active Substance: PACLITAXEL PROTEIN-BOUND PARTICLES
     Dates: end: 20240607

REACTIONS (8)
  - Dyspepsia [None]
  - Vomiting [None]
  - Chest discomfort [None]
  - Dyspnoea [None]
  - Dysuria [None]
  - Fungal infection [None]
  - Dizziness [None]
  - Haematemesis [None]

NARRATIVE: CASE EVENT DATE: 20240618
